FAERS Safety Report 8956595 (Version 3)
Quarter: 2013Q1

REPORT INFORMATION
  Report Type: Spontaneous
  Country: US (occurrence: US)
  Receive Date: 20121210
  Receipt Date: 20130123
  Transmission Date: 20140127
  Serious: Yes (Other)
  Sender: FDA-Public Use
  Company Number: US-TEVA-374729USA

PATIENT
  Sex: Female

DRUGS (10)
  1. COPAXONE [Suspect]
     Indication: MULTIPLE SCLEROSIS
  2. MORPHINE [Concomitant]
  3. EPIPEN [Concomitant]
  4. IBUPROFEN [Concomitant]
  5. CODEINE [Concomitant]
  6. DEMEROL [Concomitant]
  7. HYDROCODONE [Concomitant]
  8. OXYCODONE [Concomitant]
  9. LORTAB [Concomitant]
  10. MOTRIN [Concomitant]

REACTIONS (4)
  - Injection site necrosis [Unknown]
  - Injection site discolouration [Unknown]
  - Injection site scar [Not Recovered/Not Resolved]
  - Injection site haemorrhage [Not Recovered/Not Resolved]
